FAERS Safety Report 4879632-2 (Version None)
Quarter: 2006Q1

REPORT INFORMATION
  Report Type: 
  Country: None (occurrence: None)
  Receive Date: 20060111
  Receipt Date: 20060104
  Transmission Date: 20060701
  Serious: Yes (Death)
  Sender: FDA-Public Use
  Company Number: 2006-01-0280

PATIENT
  Age: 83 Year
  Sex: Male

DRUGS (2)
  1. INTRON A [Suspect]
     Indication: MULTIPLE MYELOMA
     Dosage: 40 MG TIW SUBCUTANEOUS
     Route: 058
     Dates: start: 20040702
  2. THALIDOMIDE TABLETS [Suspect]
     Indication: MULTIPLE MYELOMA
     Dosage: 200 MG* ORAL
     Route: 048
     Dates: start: 20031028

REACTIONS (2)
  - BRONCHITIS [None]
  - FATIGUE [None]
